FAERS Safety Report 7339255-2 (Version None)
Quarter: 2011Q1

REPORT INFORMATION
  Report Type: 
  Country: None (occurrence: None)
  Receive Date: 20110308
  Receipt Date: 20110224
  Transmission Date: 20110831
  Serious: Yes (Hospitalization)
  Sender: FDA-Public Use
  Company Number: US-ELI_LILLY_AND_COMPANY-US201009004082

PATIENT
  Sex: Female

DRUGS (17)
  1. FORTEO [Suspect]
     Indication: OSTEOPOROSIS
     Dosage: 20 UG, DAILY (1/D)
  2. CRESTOR [Concomitant]
  3. VITAMIN D [Concomitant]
  4. PREVACID [Concomitant]
  5. BENICAR [Concomitant]
     Dosage: 40 MG, UNK
  6. COREG [Concomitant]
  7. IMDUR [Concomitant]
  8. CALTRATE [Concomitant]
  9. FORTEO [Suspect]
     Dosage: 20 UG, DAILY (1/D)
  10. VESICARE [Concomitant]
     Indication: INCONTINENCE
  11. RANEXA [Concomitant]
  12. IMURAN [Concomitant]
  13. PREDNISONE [Concomitant]
  14. TYLENOL W/ CODEINE NO. 3 [Concomitant]
     Dosage: UNK, EVERY 6 HRS
  15. HUMIRA [Concomitant]
     Indication: RHEUMATOID ARTHRITIS
  16. HYZAAR [Concomitant]
  17. IRON [Concomitant]

REACTIONS (8)
  - GAIT DISTURBANCE [None]
  - JAW DISORDER [None]
  - WHITE BLOOD CELLS URINE POSITIVE [None]
  - ANXIETY [None]
  - BLOOD PRESSURE INCREASED [None]
  - CARDIAC DISORDER [None]
  - BLOOD SODIUM DECREASED [None]
  - ANGINA PECTORIS [None]
